FAERS Safety Report 5600253-8 (Version None)
Quarter: 2008Q1

REPORT INFORMATION
  Report Type: 
  Country: None (occurrence: None)
  Receive Date: 20080123
  Receipt Date: 20080116
  Transmission Date: 20080703
  Serious: Yes (Hospitalization)
  Sender: FDA-Public Use
  Company Number: NL-AVENTIS-200810608GDDC

PATIENT
  Age: 53 Year
  Sex: Male
  Weight: 70 kg

DRUGS (3)
  1. FLAGYL [Suspect]
     Indication: ORAL CANDIDIASIS
     Route: 048
     Dates: start: 20071217
  2. DAKTARIN                           /00310801/ [Suspect]
     Indication: ORAL CANDIDIASIS
     Dosage: DOSE: UNK
     Route: 061
     Dates: start: 20071223, end: 20071228
  3. TRISPORAL [Suspect]
     Indication: ORAL CANDIDIASIS
     Dosage: DOSE: UNK
     Dates: start: 20071228, end: 20080102

REACTIONS (1)
  - DERMATOMYOSITIS [None]
